FAERS Safety Report 7949100-X (Version None)
Quarter: 2011Q4

REPORT INFORMATION
  Report Type: 
  Country: None (occurrence: None)
  Receive Date: 20111123
  Receipt Date: 20111110
  Transmission Date: 20120403
  Serious: Yes (Other)
  Sender: FDA-Public Use
  Company Number: PRAN20110007

PATIENT
  Age: 8 Month

DRUGS (1)
  1. PROPRANOLOL HCL [Suspect]
     Indication: HAEMANGIOMA
     Dosage: 5MG/KG/DAY, ORAL
     Route: 048

REACTIONS (2)
  - HYPOGLYCAEMIC SEIZURE [None]
  - ACCIDENTAL OVERDOSE [None]
